FAERS Safety Report 5788349-1 (Version None)
Quarter: 2008Q2

REPORT INFORMATION
  Report Type: 
  Country: None (occurrence: None)
  Receive Date: 20080620
  Receipt Date: 20080611
  Transmission Date: 20081010
  Serious: Yes (Death)
  Sender: FDA-Public Use
  Company Number: 08H-163-0314416-00

PATIENT
  Age: 33 Year
  Sex: Female

DRUGS (4)
  1. PROPOFOL [Suspect]
     Indication: INTRACRANIAL PRESSURE INCREASED
     Dosage: SEE IMAGE
  2. MORPHINE [Concomitant]
  3. NOREPINEPHRINE BITARTRATE [Concomitant]
  4. PANCURONIUM [Concomitant]

REACTIONS (20)
  - ACUTE CORONARY SYNDROME [None]
  - ATRIOVENTRICULAR BLOCK FIRST DEGREE [None]
  - BLOOD CREATINE PHOSPHOKINASE INCREASED [None]
  - BLOOD TRIGLYCERIDES INCREASED [None]
  - BRADYCARDIA [None]
  - BUNDLE BRANCH BLOCK LEFT [None]
  - BUNDLE BRANCH BLOCK RIGHT [None]
  - CARDIAC ARREST [None]
  - CONVULSION [None]
  - DRUG INEFFECTIVE [None]
  - ELECTROMECHANICAL DISSOCIATION [None]
  - HYPOTENSION [None]
  - METABOLIC ACIDOSIS [None]
  - MYOGLOBIN BLOOD INCREASED [None]
  - NO THERAPEUTIC RESPONSE [None]
  - PROPOFOL INFUSION SYNDROME [None]
  - ROAD TRAFFIC ACCIDENT [None]
  - SEPSIS [None]
  - TACHYCARDIA [None]
  - VENTRICULAR TACHYCARDIA [None]
